FAERS Safety Report 5034828-4 (Version None)
Quarter: 2006Q2

REPORT INFORMATION
  Report Type: 
  Country: None (occurrence: None)
  Receive Date: 20060519
  Receipt Date: 20060301
  Transmission Date: 20061013
  Serious: No
  Sender: FDA-Public Use
  Company Number: TPA2006A00359

PATIENT
  Age: 66 Year
  Sex: Female
  Weight: 65.318 kg

DRUGS (3)
  1. ROZEREM [Suspect]
     Indication: SLEEP DISORDER
     Dosage: 8 MG, HS, PER ORAL
     Route: 048
     Dates: start: 20060223
  2. UNISOM [Suspect]
     Indication: SLEEP DISORDER
     Dosage: PRN, PER ORAL
     Route: 048
  3. AMITRIPTYLINE (AMITRIPTYLINE) (40 MILLIGRAM) [Concomitant]

REACTIONS (1)
  - MIDDLE INSOMNIA [None]
